FAERS Safety Report 18302304 (Version 1)
Quarter: 2020Q3

REPORT INFORMATION
  Report Type: Report from Study
  Country: CA (occurrence: CA)
  Receive Date: 20200923
  Receipt Date: 20200923
  Transmission Date: 20201103
  Serious: Yes (Hospitalization)
  Sender: FDA-Public Use
  Company Number: CA-JNJFOC-20200927427

PATIENT
  Age: 91 Year
  Sex: Female

DRUGS (2)
  1. ELIQUIS [Suspect]
     Active Substance: APIXABAN
     Indication: PRODUCT USED FOR UNKNOWN INDICATION
     Route: 065
  2. STELARA [Suspect]
     Active Substance: USTEKINUMAB
     Indication: CROHN^S DISEASE
     Route: 058
     Dates: start: 20191002

REACTIONS (6)
  - Aortic valve disease [Unknown]
  - Pulmonary oedema [Unknown]
  - Renal disorder [Unknown]
  - Constipation [Unknown]
  - Vein rupture [Unknown]
  - Blindness [Unknown]

NARRATIVE: CASE EVENT DATE: 2020
